FAERS Safety Report 5356839-1 (Version None)
Quarter: 2007Q2

REPORT INFORMATION
  Report Type: 
  Country: None (occurrence: None)
  Receive Date: 20070614
  Receipt Date: 20061009
  Transmission Date: 20071010
  Serious: No
  Sender: FDA-Public Use
  Company Number: US-ASTRAZENECA-2006UW19561

PATIENT
  Age: 69 Year
  Sex: Female
  Weight: 75.7 kg

DRUGS (1)
  1. ATACAND [Suspect]
     Indication: CARDIOMEGALY
     Route: 048
     Dates: start: 20061005

REACTIONS (1)
  - FEELING ABNORMAL [None]
